FAERS Safety Report 13208474 (Version 1)
Quarter: 2017Q1

REPORT INFORMATION
  Report Type: Spontaneous
  Country: US (occurrence: US)
  Receive Date: 20170209
  Receipt Date: 20170209
  Transmission Date: 20170428
  Serious: No
  Sender: FDA-Public Use
  Company Number: US-ROCHE-1698497

PATIENT
  Sex: Female

DRUGS (5)
  1. XOLAIR [Suspect]
     Active Substance: OMALIZUMAB
     Indication: IDIOPATHIC URTICARIA
     Dosage: LAST DOSE 11/JAN/2016
     Route: 065
  2. ATARAX [Suspect]
     Active Substance: HYDROXYZINE HYDROCHLORIDE
     Indication: IDIOPATHIC URTICARIA
     Route: 048
  3. DAPSONE. [Suspect]
     Active Substance: DAPSONE
     Indication: IDIOPATHIC URTICARIA
     Route: 048
  4. CLARITIN [Suspect]
     Active Substance: LORATADINE
     Indication: IDIOPATHIC URTICARIA
     Route: 048
  5. DOXEPIN [Suspect]
     Active Substance: DOXEPIN
     Indication: IDIOPATHIC URTICARIA
     Route: 048

REACTIONS (2)
  - No adverse event [Unknown]
  - Drug ineffective [Unknown]
